FAERS Safety Report 8025274 (Version 2)
Quarter: 2012Q4

REPORT INFORMATION
  Report Type: Spontaneous
  Country: US (occurrence: None)
  Receive Date: 20110620
  Receipt Date: 20121106
  Transmission Date: 20130627
  Serious: Yes (Death)
  Sender: FDA-Public Use
  Company Number: NPIL/SEV/H/2011/23

PATIENT
  Age: 37 Year
  Sex: Male
  Weight: 61.24 kg

DRUGS (1)
  1. SEVOFLURANE [Suspect]
     Indication: DRUG OVERDOSE
     Route: 055

REACTIONS (2)
  - Accidental death [None]
  - Overdose [None]
